FAERS Safety Report 9894877 (Version 1)
Quarter: 2014Q1

REPORT INFORMATION
  Report Type: Spontaneous
  Country: BR (occurrence: BR)
  Receive Date: 20140213
  Receipt Date: 20140213
  Transmission Date: 20141002
  Serious: Yes (Other)
  Sender: FDA-Public Use
  Company Number: BR-PFIZER INC-2014039879

PATIENT
  Age: 87 Year
  Sex: Female

DRUGS (1)
  1. FRONTAL [Suspect]
     Dosage: 1 MG, UNK
     Route: 048

REACTIONS (1)
  - Cerebrovascular accident [Unknown]
